FAERS Safety Report 8621557 (Version 2)
Quarter: 2012Q4

REPORT INFORMATION
  Report Type: 
  Country: US (occurrence: US)
  Receive Date: 20120619
  Receipt Date: 20120831
  Transmission Date: 20130627
  Serious: Yes (Other)
  Sender: FDA-Public Use
  Company Number: US-PFIZER INC-2012140420

PATIENT
  Age: 79 Year
  Sex: Male
  Weight: 74.83 kg

DRUGS (6)
  1. XALATAN [Suspect]
     Dosage: UNK
     Route: 047
  2. CELEBREX [Suspect]
     Indication: ARTHRALGIA
     Dosage: 200 mg, daily
     Route: 048
  3. LYRICA [Suspect]
     Indication: ARTHRITIS
     Dosage: 50 mg, 3x/day
     Route: 048
  4. LYRICA [Suspect]
     Indication: BONE PAIN
     Dosage: 50 mg, 2x/day
     Route: 048
     Dates: end: 201208
  5. LYRICA [Suspect]
     Indication: BURNING SENSATION
  6. FUROSEMIDE [Concomitant]
     Indication: DIURETIC THERAPY
     Dosage: 50 mg, 3x/day

REACTIONS (5)
  - Visual acuity reduced [Unknown]
  - Hearing impaired [Unknown]
  - Ear disorder [Unknown]
  - Pain [Unknown]
  - Burning sensation [Not Recovered/Not Resolved]
